FAERS Safety Report 8054234-8 (Version None)
Quarter: 2012Q1

REPORT INFORMATION
  Report Type: 
  Country: None (occurrence: None)
  Receive Date: 20120118
  Receipt Date: 20120116
  Transmission Date: 20120608
  Serious: Yes (Other)
  Sender: FDA-Public Use
  Company Number: US-BAYER-2012-004443

PATIENT

DRUGS (3)
  1. LINEZOLID [Suspect]
     Indication: TUBERCULOSIS
  2. ETHIONAMIDE [Suspect]
     Indication: TUBERCULOSIS
  3. MOXIFLOXACIN [Suspect]
     Indication: TUBERCULOSIS

REACTIONS (1)
  - DEAFNESS [None]
